FAERS Safety Report 10686062 (Version 1)
Quarter: 2014Q4

REPORT INFORMATION
  Report Type: Spontaneous
  Country: US (occurrence: US)
  Receive Date: 20141231
  Receipt Date: 20141231
  Transmission Date: 20150529
  Serious: No
  Sender: FDA-Public Use
  Company Number: US-PFIZER INC-2014361102

PATIENT
  Sex: Female

DRUGS (2)
  1. PRISTIQ EXTENDED RELEASE [Suspect]
     Active Substance: DESVENLAFAXINE SUCCINATE
     Dosage: 50 MG, UNK
  2. PRISTIQ EXTENDED RELEASE [Suspect]
     Active Substance: DESVENLAFAXINE SUCCINATE
     Dosage: 100 MG, UNK

REACTIONS (5)
  - Nausea [Unknown]
  - Dizziness [Unknown]
  - Drug withdrawal syndrome [Unknown]
  - Diarrhoea [Unknown]
  - Vomiting [Unknown]
